FAERS Safety Report 10545935 (Version 2)
Quarter: 2014Q4

REPORT INFORMATION
  Report Type: Report from Study
  Country: US (occurrence: US)
  Receive Date: 20141027
  Receipt Date: 20141027
  Transmission Date: 20150529
  Serious: Yes (Other)
  Sender: FDA-Public Use
  Company Number: US-ABBVIE-13P-163-1178150-00

PATIENT
  Sex: Female
  Weight: 109.87 kg

DRUGS (3)
  1. LUPRON DEPOT [Suspect]
     Active Substance: LEUPROLIDE ACETATE
     Route: 030
     Dates: start: 20131223
  2. LUPRON DEPOT [Suspect]
     Active Substance: LEUPROLIDE ACETATE
     Indication: UTERINE LEIOMYOMA
     Route: 030
     Dates: start: 201009, end: 201103
  3. MULTIVITAMIN [Concomitant]
     Active Substance: VITAMINS
     Indication: PRODUCT USED FOR UNKNOWN INDICATION

REACTIONS (13)
  - Bladder disorder [Not Recovered/Not Resolved]
  - Nasopharyngitis [Recovered/Resolved]
  - Dysuria [Not Recovered/Not Resolved]
  - Paranasal sinus hypersecretion [Recovered/Resolved]
  - Uterine leiomyoma [Not Recovered/Not Resolved]
  - Headache [Not Recovered/Not Resolved]
  - Muscle spasms [Not Recovered/Not Resolved]
  - Uterine enlargement [Not Recovered/Not Resolved]
  - Uterine leiomyoma [Unknown]
  - Uterine leiomyoma [Not Recovered/Not Resolved]
  - Hot flush [Recovered/Resolved]
  - Pelvic pain [Not Recovered/Not Resolved]
  - Migraine [Not Recovered/Not Resolved]

NARRATIVE: CASE EVENT DATE: 2010
